FAERS Safety Report 9008973 (Version 1)
Quarter: 2013Q1

REPORT INFORMATION
  Report Type: Spontaneous
  Country: US (occurrence: US)
  Receive Date: 20130112
  Receipt Date: 20130112
  Transmission Date: 20140127
  Serious: Yes (Other)
  Sender: FDA-Public Use
  Company Number: US-009507513-0901USA02208

PATIENT
  Sex: Male
  Weight: 21.32 kg

DRUGS (1)
  1. SINGULAIR [Suspect]
     Indication: ASTHMA
     Dosage: 4 MG, EACH EVENING
     Route: 048
     Dates: start: 20031201, end: 20070101

REACTIONS (7)
  - Abnormal behaviour [Recovering/Resolving]
  - Anxiety disorder [Recovering/Resolving]
  - Conduct disorder [Recovering/Resolving]
  - Depression [Recovering/Resolving]
  - Emotional disorder [Recovering/Resolving]
  - Social avoidant behaviour [Recovering/Resolving]
  - Social phobia [Recovering/Resolving]
